FAERS Safety Report 11801196 (Version 2)
Quarter: 2015Q4

REPORT INFORMATION
  Report Type: Spontaneous
  Country: FR (occurrence: FR)
  Receive Date: 20151204
  Receipt Date: 20151210
  Transmission Date: 20160305
  Serious: Yes (Death, Hospitalization, Other)
  Sender: FDA-Public Use
  Company Number: FR-WATSON-2015-26159

PATIENT
  Age: 67 Year
  Sex: Male

DRUGS (14)
  1. AMIODARONE [Concomitant]
     Active Substance: AMIODARONE
     Indication: PRODUCT USED FOR UNKNOWN INDICATION
     Dosage: 200 MG
     Route: 065
  2. FLUINDIONE [Concomitant]
     Active Substance: FLUINDIONE
     Indication: PRODUCT USED FOR UNKNOWN INDICATION
     Dosage: 15 MG
     Route: 065
  3. PRAVASTATIN [Interacting]
     Active Substance: PRAVASTATIN\PRAVASTATIN SODIUM
     Indication: PRODUCT USED FOR UNKNOWN INDICATION
     Dosage: 40 MG
     Route: 048
  4. ALLOPURINOL. [Concomitant]
     Active Substance: ALLOPURINOL
     Indication: PRODUCT USED FOR UNKNOWN INDICATION
     Dosage: 200 MG, UNKNOWN
     Route: 065
  5. GENTAMICIN. [Concomitant]
     Active Substance: GENTAMICIN
     Indication: STAPHYLOCOCCAL INFECTION
  6. OXACILLIN [Concomitant]
     Active Substance: OXACILLIN SODIUM
     Indication: STAPHYLOCOCCAL INFECTION
  7. CIPROFLOXACIN HYDROCHLORIDE (UNKNOWN) [Suspect]
     Active Substance: CIPROFLOXACIN HYDROCHLORIDE
     Indication: STAPHYLOCOCCAL INFECTION
  8. OXACILLIN [Concomitant]
     Active Substance: OXACILLIN SODIUM
     Indication: IMPLANT SITE ABSCESS
     Dosage: INTRAVENOUS TREATMENT FOR SHORT PERIOD OF TIME
     Route: 042
  9. GENTAMICIN. [Concomitant]
     Active Substance: GENTAMICIN
     Indication: IMPLANT SITE ABSCESS
     Dosage: INTRAVENOUS TREATMENT FOR SHORT PERIOD OF TIME
     Route: 042
  10. FUSIDIC ACID (UNKNOWN) [Interacting]
     Active Substance: FUSIDIC ACID
     Indication: IMPLANT SITE ABSCESS
     Dosage: 1500 MG/DAY
     Route: 048
  11. CIPROFLOXACIN HYDROCHLORIDE (UNKNOWN) [Suspect]
     Active Substance: CIPROFLOXACIN HYDROCHLORIDE
     Indication: IMPLANT SITE ABSCESS
     Dosage: 1000 MG/DAY
     Route: 048
  12. OLMESARTAN [Concomitant]
     Active Substance: OLMESARTAN
     Indication: PRODUCT USED FOR UNKNOWN INDICATION
     Dosage: 40 MG, UNKNOWN
     Route: 065
  13. FUSIDIC ACID (UNKNOWN) [Interacting]
     Active Substance: FUSIDIC ACID
     Indication: STAPHYLOCOCCAL INFECTION
  14. HYDROCHLOROTHIAZIDE. [Concomitant]
     Active Substance: HYDROCHLOROTHIAZIDE
     Indication: PRODUCT USED FOR UNKNOWN INDICATION
     Dosage: 12.5 MG, UNKNOWN
     Route: 065

REACTIONS (7)
  - Drug interaction [Fatal]
  - Renal tubular necrosis [Fatal]
  - Bilirubin conjugated increased [Unknown]
  - Gastrointestinal disorder [Unknown]
  - Alanine aminotransferase increased [Unknown]
  - Rhabdomyolysis [Fatal]
  - Aspartate aminotransferase increased [Unknown]
